FAERS Safety Report 11275311 (Version 1)
Quarter: 2015Q3

REPORT INFORMATION
  Report Type: Spontaneous
  Country: FR (occurrence: FR)
  Receive Date: 20150716
  Receipt Date: 20150716
  Transmission Date: 20151125
  Serious: Yes (Hospitalization)
  Sender: FDA-Public Use
  Company Number: FR-009507513-1507FRA005095

PATIENT
  Age: 80 Year
  Sex: Female

DRUGS (12)
  1. LOPERAMIDE HYDROCHLORIDE. [Concomitant]
     Active Substance: LOPERAMIDE HYDROCHLORIDE
  2. VFEND [Concomitant]
     Active Substance: VORICONAZOLE
     Dosage: 200 MG, BID
  3. ROCEPHIN [Suspect]
     Active Substance: CEFTRIAXONE SODIUM
     Indication: KLEBSIELLA SEPSIS
     Dosage: UNK
     Route: 042
     Dates: start: 20150615, end: 20150617
  4. RISPERDAL [Concomitant]
     Active Substance: RISPERIDONE
  5. PANTOPRAZOLE [Concomitant]
     Active Substance: PANTOPRAZOLE SODIUM
  6. TIORFAN [Concomitant]
     Active Substance: RACECADOTRIL
  7. DIFFU-K [Concomitant]
     Active Substance: POTASSIUM CHLORIDE
  8. IMOVANE [Concomitant]
     Active Substance: ZOPICLONE
  9. TARGOCID [Concomitant]
     Active Substance: TEICOPLANIN
  10. VFEND [Concomitant]
     Active Substance: VORICONAZOLE
     Dosage: 400 MG, BID
  11. CANCIDAS [Suspect]
     Active Substance: CASPOFUNGIN ACETATE
     Indication: CANDIDA INFECTION
     Dosage: UNK
     Route: 042
     Dates: start: 20150614, end: 20150616
  12. DOLIPRANE [Concomitant]
     Active Substance: ACETAMINOPHEN

REACTIONS (2)
  - Arthralgia [Recovering/Resolving]
  - Pancytopenia [Recovered/Resolved]

NARRATIVE: CASE EVENT DATE: 20150616
